FAERS Safety Report 4622533-5 (Version None)
Quarter: 2005Q1

REPORT INFORMATION
  Report Type: 
  Country: None (occurrence: None)
  Receive Date: 20050325
  Receipt Date: 20050325
  Transmission Date: 20050727
  Serious: Yes (Death)
  Sender: FDA-Public Use
  Company Number: None

PATIENT
  Age: 20 Year
  Sex: Female

DRUGS (6)
  1. NEURONTIN [Suspect]
     Indication: ANXIETY
     Dosage: 1800MG DAILY ORAL
     Route: 048
     Dates: start: 19970101, end: 20020101
  2. NEURONTIN [Suspect]
     Indication: DEPRESSION
     Dosage: 1800MG DAILY ORAL
     Route: 048
     Dates: start: 19970101, end: 20020101
  3. ZITHROMAX [Concomitant]
  4. BACLOFEN [Concomitant]
  5. BENZONATATE [Concomitant]
  6. TRAZODONE HCL [Concomitant]

REACTIONS (2)
  - COMPLETED SUICIDE [None]
  - OVERDOSE [None]
